FAERS Safety Report 5356941-4 (Version None)
Quarter: 2007Q2

REPORT INFORMATION
  Report Type: 
  Country: None (occurrence: None)
  Receive Date: 20070614
  Receipt Date: 20070604
  Transmission Date: 20071010
  Serious: Yes (Life-Threatening, Hospitalization, Disabling)
  Sender: FDA-Public Use
  Company Number: PHHO2007TH05318

PATIENT
  Age: 31 Year
  Sex: Female
  Weight: 49 kg

DRUGS (3)
  1. EXJADE [Suspect]
     Indication: BLOOD IRON INCREASED
     Dosage: 20 MG/KG, QD
     Route: 048
     Dates: start: 20070226, end: 20070322
  2. FOLIC ACID [Concomitant]
  3. PARACETAMOL [Concomitant]

REACTIONS (14)
  - BLOOD CREATININE INCREASED [None]
  - BLOOD UREA INCREASED [None]
  - CRYOGLOBULINS PRESENT [None]
  - GENERALISED OEDEMA [None]
  - GLOMERULONEPHRITIS PROLIFERATIVE [None]
  - HAEMODIALYSIS [None]
  - LYMPHADENOPATHY [None]
  - NEPHRITIS [None]
  - OLIGURIA [None]
  - PYELONEPHRITIS CHRONIC [None]
  - PYREXIA [None]
  - RENAL FAILURE ACUTE [None]
  - RENAL TUBULAR NECROSIS [None]
  - STREPTOCOCCAL INFECTION [None]
